FAERS Safety Report 17861445 (Version 1)
Quarter: 2020Q2

REPORT INFORMATION
  Report Type: Spontaneous
  Country: US (occurrence: US)
  Receive Date: 20200604
  Receipt Date: 20200604
  Transmission Date: 20200714
  Serious: Yes (Hospitalization, Other)
  Sender: FDA-Public Use
  Company Number: US-ROCHE-2607417

PATIENT
  Age: 78 Year
  Sex: Male
  Weight: 72 kg

DRUGS (11)
  1. INSULIN LISPRO [Concomitant]
     Active Substance: INSULIN LISPRO
     Indication: DIABETES MELLITUS
     Dosage: WITH MEALS, SLIDING SCALE, TAPERED DOWN
     Route: 065
     Dates: start: 20200316
  2. METOPROLOL. [Concomitant]
     Active Substance: METOPROLOL
     Indication: CARDIAC FAILURE
     Route: 065
  3. SITAGLIPTIN [Concomitant]
     Active Substance: SITAGLIPTIN
     Indication: DIABETES MELLITUS
     Route: 065
  4. INSULIN GLARGINE [Concomitant]
     Active Substance: INSULIN GLARGINE
     Indication: DIABETES MELLITUS
     Route: 065
     Dates: start: 20200316
  5. SULFAMETHOXAZOLE/TRIMETHOPRIM [Concomitant]
     Active Substance: SULFAMETHOXAZOLE\TRIMETHOPRIM
     Indication: ACQUIRED HAEMOPHILIA
     Dosage: 1 TABLET 3 TIMES A WEEK MONDAY,WEDNESDAY AND FRIDAY ,DOUBLE STREGNTH.
     Route: 065
     Dates: start: 20200316
  6. PREDNISONE. [Concomitant]
     Active Substance: PREDNISONE
     Indication: ACQUIRED HAEMOPHILIA
     Dosage: NOW ON 10 MG, DECREASE 20 MG EVERY WEEK. ONGOING
     Route: 065
     Dates: start: 20200316
  7. HEMLIBRA [Suspect]
     Active Substance: EMICIZUMAB-KXWH
     Indication: ACQUIRED HAEMOPHILIA
     Dosage: 3 MG/KG,4 LOADING DOSES AND 1 MAINTENANCE DOSE GIVEN.
     Route: 058
     Dates: start: 20200409, end: 20200521
  8. ATORVASTATIN [Concomitant]
     Active Substance: ATORVASTATIN
     Indication: CORONARY ARTERY DISEASE
     Route: 065
  9. OMEPRAZOLE. [Concomitant]
     Active Substance: OMEPRAZOLE
     Route: 065
     Dates: start: 20200316
  10. METFORMIN [Concomitant]
     Active Substance: METFORMIN HYDROCHLORIDE
     Indication: DIABETES MELLITUS
     Route: 065
  11. FUROSEMIDE. [Concomitant]
     Active Substance: FUROSEMIDE
     Indication: CARDIAC FAILURE
     Route: 065

REACTIONS (5)
  - Off label use [Unknown]
  - Deep vein thrombosis [Not Recovered/Not Resolved]
  - Cellulitis [Recovering/Resolving]
  - Peripheral swelling [Recovering/Resolving]
  - Intentional product use issue [Unknown]

NARRATIVE: CASE EVENT DATE: 20200515
